FAERS Safety Report 8791431 (Version 1)
Quarter: 2012Q4

REPORT INFORMATION
  Report Type: Spontaneous
  Country: US (occurrence: None)
  Receive Date: 20120914
  Receipt Date: 20120914
  Transmission Date: 20130627
  Serious: Yes (Hospitalization)
  Sender: FDA-Public Use
  Company Number: None

PATIENT
  Age: 39 Year
  Sex: Female
  Weight: 104.78 kg

DRUGS (1)
  1. ZOLADEX [Suspect]
     Indication: UTERINE FIBROID
     Dosage: 3.6 mg 1 mon. injection in stomach
     Dates: start: 20120403

REACTIONS (6)
  - Blood pressure increased [None]
  - Blood cholesterol increased [None]
  - Hot flush [None]
  - Dizziness [None]
  - Feeling jittery [None]
  - Cardiac disorder [None]
